FAERS Safety Report 4514186-1 (Version None)
Quarter: 2004Q4

REPORT INFORMATION
  Report Type: 
  Country: None (occurrence: None)
  Receive Date: 20041129
  Receipt Date: 20041123
  Transmission Date: 20050328
  Serious: Yes (Death)
  Sender: FDA-Public Use
  Company Number: 04-11-1635

PATIENT
  Age: 86 Year
  Sex: Female

DRUGS (1)
  1. CLOZAPINE [Suspect]
     Dosage: 25 MG QD ORAL
     Route: 048
     Dates: start: 20030301, end: 20040801

REACTIONS (1)
  - CARDIAC FAILURE CONGESTIVE [None]
